FAERS Safety Report 12384235 (Version 1)
Quarter: 2016Q2

REPORT INFORMATION
  Report Type: Spontaneous
  Country: US (occurrence: None)
  Receive Date: 20160518
  Receipt Date: 20160518
  Transmission Date: 20160815
  Serious: No
  Sender: FDA-Public Use
  Company Number: None

PATIENT
  Age: 84 Year
  Sex: Female

DRUGS (1)
  1. FORTEO [Suspect]
     Active Substance: TERIPARATIDE
     Indication: OSTEOPOROSIS
     Route: 058
     Dates: start: 20160407, end: 20160516

REACTIONS (4)
  - Depression [None]
  - Asthenia [None]
  - Insomnia [None]
  - Neck pain [None]

NARRATIVE: CASE EVENT DATE: 20160516
